FAERS Safety Report 5645273-2 (Version None)
Quarter: 2008Q1

REPORT INFORMATION
  Report Type: 
  Country: None (occurrence: None)
  Receive Date: 20080229
  Receipt Date: 20080222
  Transmission Date: 20080703
  Serious: Yes (Hospitalization)
  Sender: FDA-Public Use
  Company Number: GB-SANOFI-SYNTHELABO-A01200704411

PATIENT
  Age: 53 Year
  Sex: Male

DRUGS (4)
  1. METFORMIN HCL [Concomitant]
     Indication: TYPE 2 DIABETES MELLITUS
     Dosage: UNK
  2. CAPECITABINE [Concomitant]
     Indication: COLON CANCER
     Dosage: BID, D1-14, Q3W
     Route: 048
  3. OXALIPLATIN [Suspect]
     Indication: COLON CANCER
     Route: 041
  4. SIMVASTATIN [Concomitant]
     Indication: HYPERCHOLESTEROLAEMIA
     Dosage: UNK

REACTIONS (10)
  - ACIDOSIS [None]
  - ANOREXIA [None]
  - BLOOD POTASSIUM DECREASED [None]
  - DEHYDRATION [None]
  - DYSPNOEA [None]
  - LETHARGY [None]
  - NAUSEA [None]
  - POLYURIA [None]
  - RENAL TUBULAR ACIDOSIS [None]
  - TACHYPNOEA [None]
